FAERS Safety Report 7956633-9 (Version None)
Quarter: 2011Q4

REPORT INFORMATION
  Report Type: 
  Country: None (occurrence: None)
  Receive Date: 20111205
  Receipt Date: 20111130
  Transmission Date: 20120403
  Serious: Yes (Death, Hospitalization)
  Sender: FDA-Public Use
  Company Number: US-CELGENEUS-163-21880-11113318

PATIENT
  Sex: Male
  Weight: 82.5 kg

DRUGS (22)
  1. AMBISOME [Concomitant]
     Dosage: 400 MILLIGRAM
     Route: 041
  2. AMBISOME [Concomitant]
     Dosage: 50 MILLIGRAM
     Route: 041
  3. ZOSYN [Concomitant]
     Dosage: 4-0.5GM/100ML
     Route: 065
  4. PANTOPRAZOLE [Concomitant]
     Dosage: 40 MILLIGRAM
     Route: 048
  5. LORAZEPAM [Concomitant]
     Indication: SLEEP DISORDER
     Dosage: 1 MILLIGRAM
     Route: 048
  6. CARDIZEM [Concomitant]
     Dosage: 1/2 TABLET
     Route: 048
  7. REVLIMID [Suspect]
     Dosage: 50 MILLIGRAM
     Route: 048
     Dates: start: 20111117, end: 20111118
  8. ZOSYN [Concomitant]
     Dosage: 4.5 MILLIGRAM
     Route: 041
  9. ZOFRAN [Concomitant]
     Indication: NAUSEA
     Dosage: 8 MILLIGRAM
     Route: 048
  10. VALTREX [Concomitant]
     Dosage: 500 MILLIGRAM
     Route: 048
  11. REVLIMID [Suspect]
     Dosage: 50 MILLIGRAM
     Route: 048
     Dates: start: 20111026, end: 20111110
  12. ESCITALOPRAM [Concomitant]
     Dosage: 5 MILLIGRAM
     Route: 048
  13. LORAZEPAM [Concomitant]
     Indication: ANXIETY
     Dosage: 1 MILLIGRAM
     Route: 048
  14. ESCITALOPRAM [Concomitant]
     Dosage: 10 MILLIGRAM
     Route: 048
  15. VANCOMYCIN [Concomitant]
     Route: 065
  16. MAGNESIUM OXIDE [Concomitant]
     Dosage: 400 MILLIGRAM
     Route: 048
  17. KLOR-CON [Concomitant]
     Dosage: M20
     Route: 048
  18. LORAZEPAM [Concomitant]
     Indication: NAUSEA
     Dosage: .5 MILLIGRAM
     Route: 048
  19. COMPAZINE [Concomitant]
     Dosage: 5 MILLIGRAM
     Route: 048
  20. OXYCODONE HCL [Concomitant]
     Indication: PAIN
     Dosage: 5-10MG
     Route: 048
  21. OXYGEN [Concomitant]
     Dosage: 2L
     Route: 065
  22. DOCUSATE [Concomitant]
     Route: 048

REACTIONS (5)
  - ASTHENIA [None]
  - FATIGUE [None]
  - PNEUMONIA [None]
  - CEREBELLAR HAEMORRHAGE [None]
  - FEBRILE NEUTROPENIA [None]
